FAERS Safety Report 9307953 (Version 2)
Quarter: 2013Q2

REPORT INFORMATION
  Report Type: Spontaneous
  Country: US (occurrence: US)
  Receive Date: 20130524
  Receipt Date: 20130604
  Transmission Date: 20140414
  Serious: Yes (Hospitalization)
  Sender: FDA-Public Use
  Company Number: US-AMGEN-USASP2013036446

PATIENT
  Age: 65 Year
  Sex: Female

DRUGS (8)
  1. ENBREL [Suspect]
     Indication: RHEUMATOID ARTHRITIS
     Dosage: 50 MG, UNK FOR ABOUT 10 YEARS
  2. METHOTREXATE [Concomitant]
     Dosage: UNK UNK, QD
  3. RESTASIS [Concomitant]
     Dosage: UNK
  4. VITAMIN B COMPLEX [Concomitant]
     Dosage: UNK
  5. VITAMIN D2 [Concomitant]
     Dosage: 50000 UNK, QD
  6. ASPIRIN [Concomitant]
     Dosage: 325 MG, QD
  7. FOLIC ACID [Concomitant]
     Dosage: 5 MG, QD
  8. FISH OIL W/TOCOPHEROL [Concomitant]
     Dosage: 2000 MG, QD

REACTIONS (6)
  - Transient global amnesia [Recovered/Resolved]
  - Fall [Recovered/Resolved]
  - Dysarthria [Recovered/Resolved]
  - Palpitations [Recovered/Resolved]
  - Osteoporosis postmenopausal [Unknown]
  - Bone loss [Unknown]
